FAERS Safety Report 16180841 (Version 1)
Quarter: 2019Q2

REPORT INFORMATION
  Report Type: Report from Study
  Country: None (occurrence: BR)
  Receive Date: 20190410
  Receipt Date: 20190410
  Transmission Date: 20190711
  Serious: Yes (Hospitalization, Other)
  Sender: FDA-Public Use
  Company Number: BR-ABBVIE-19K-020-2734493-00

PATIENT
  Sex: Female
  Weight: 59.5 kg

DRUGS (1)
  1. HUMIRA [Suspect]
     Active Substance: ADALIMUMAB
     Indication: RHEUMATOID ARTHRITIS
     Route: 058
     Dates: start: 20150209

REACTIONS (5)
  - Asthenia [Unknown]
  - Asthenia [Recovered/Resolved]
  - Heart rate decreased [Unknown]
  - Pulmonary calcification [Unknown]
  - Post procedural complication [Unknown]

NARRATIVE: CASE EVENT DATE: 2019
